FAERS Safety Report 24372636 (Version 2)
Quarter: 2024Q4

REPORT INFORMATION
  Report Type: Spontaneous
  Country: JP (occurrence: JP)
  Receive Date: 20240927
  Receipt Date: 20241004
  Transmission Date: 20250115
  Serious: Yes (Other)
  Sender: JOHNSON AND JOHNSON
  Company Number: JP-JNJFOC-20240971914

PATIENT
  Age: 81 Year
  Sex: Female

DRUGS (2)
  1. DARATUMUMAB [Suspect]
     Active Substance: DARATUMUMAB
     Indication: Product used for unknown indication
     Dosage: DOSE UNKNOWN
     Route: 058
  2. POMALYST [Suspect]
     Active Substance: POMALIDOMIDE
     Dosage: DOSE UNKNOWN
     Route: 048

REACTIONS (1)
  - Glaucoma [Unknown]
